FAERS Safety Report 8370298-6 (Version None)
Quarter: 2012Q2

REPORT INFORMATION
  Report Type: 
  Country: None (occurrence: None)
  Receive Date: 20120518
  Receipt Date: 20110823
  Transmission Date: 20120825
  Serious: No
  Sender: FDA-Public Use
  Company Number: US-ASTRAZENECA-2011SE59282

PATIENT
  Age: 56 Year
  Sex: Male

DRUGS (1)
  1. PRILOSEC OTC [Suspect]
     Route: 048
     Dates: start: 20110625, end: 20110822

REACTIONS (2)
  - MUSCULOSKELETAL PAIN [None]
  - ARTHRALGIA [None]
